FAERS Safety Report 6600895-7 (Version None)
Quarter: 2010Q1

REPORT INFORMATION
  Report Type: 
  Country: None (occurrence: None)
  Receive Date: 20100225
  Receipt Date: 20100203
  Transmission Date: 20100710
  Serious: No
  Sender: FDA-Public Use
  Company Number: A0842807A

PATIENT
  Sex: Female

DRUGS (1)
  1. LAMICTAL CD [Suspect]
     Route: 048

REACTIONS (2)
  - DRUG EXPOSURE DURING PREGNANCY [None]
  - DRUG LEVEL DECREASED [None]
